FAERS Safety Report 5325830-3 (Version None)
Quarter: 2007Q2

REPORT INFORMATION
  Report Type: 
  Country: None (occurrence: None)
  Receive Date: 20070510
  Receipt Date: 20070424
  Transmission Date: 20071010
  Serious: Yes (Disabling)
  Sender: FDA-Public Use
  Company Number: IND-AE-07-SAN-020

PATIENT
  Age: 63 Year
  Sex: Female

DRUGS (11)
  1. TROSPIUM CHLORIDE [Suspect]
     Indication: URINARY INCONTINENCE
     Dosage: 20MG - BID - ORAL
     Route: 048
     Dates: start: 20050401, end: 20061201
  2. DETRUSITOL XL, TOLTERODINE [Concomitant]
  3. HYDROXOCOBALAMIN [Concomitant]
  4. IMODIUM, LOPERAMIDE, SIMETHICONE [Concomitant]
  5. IPRATROPIUM BROMIDE [Concomitant]
  6. LANSOPRAZOLE [Concomitant]
  7. MEBEVERINE [Concomitant]
  8. MULTIVITAMIN PREPARATION [Concomitant]
  9. PARACETAMOL [Concomitant]
  10. SALBUTAMOL, SALBUTAMOL [Concomitant]
  11. SERETIDE, FLUTICASONE, SALMETEROL [Concomitant]

REACTIONS (2)
  - CHEST DISCOMFORT [None]
  - DYSPNOEA [None]
